FAERS Safety Report 14672857 (Version 1)
Quarter: 2018Q1

REPORT INFORMATION
  Report Type: Spontaneous
  Country: GB (occurrence: GB)
  Receive Date: 20180323
  Receipt Date: 20180323
  Transmission Date: 20180509
  Serious: Yes (Other)
  Sender: FDA-Public Use
  Company Number: GB-AUROBINDO-AUR-APL-2018-015396

PATIENT
  Age: 51 Year
  Sex: Female
  Weight: 11.5 kg

DRUGS (3)
  1. PAROXETINE HYDROCHLORIDE. [Concomitant]
     Active Substance: PAROXETINE HYDROCHLORIDE
     Indication: PRODUCT USED FOR UNKNOWN INDICATION
     Dosage: UNK
  2. SERTRALINE AUROBINDO [Suspect]
     Active Substance: SERTRALINE HYDROCHLORIDE
     Indication: ANXIETY DISORDER
     Dosage: 50 MILLIGRAM
     Route: 048
     Dates: start: 20180212, end: 20180224
  3. TRANEXAMIC ACID. [Concomitant]
     Active Substance: TRANEXAMIC ACID
     Indication: PRODUCT USED FOR UNKNOWN INDICATION
     Dosage: UNK

REACTIONS (3)
  - Nausea [Recovered/Resolved]
  - Dyspepsia [Recovered/Resolved]
  - Malaise [Recovered/Resolved]

NARRATIVE: CASE EVENT DATE: 20180222
